FAERS Safety Report 9681644 (Version 1)
Quarter: 2013Q4

REPORT INFORMATION
  Report Type: Spontaneous
  Country: JP (occurrence: JP)
  Receive Date: 20131111
  Receipt Date: 20131111
  Transmission Date: 20140711
  Serious: Yes (Death, Other)
  Sender: FDA-Public Use
  Company Number: JP-ROCHE-1298393

PATIENT
  Age: 63 Year
  Sex: Male

DRUGS (6)
  1. AVASTIN [Suspect]
     Indication: LUNG ADENOCARCINOMA METASTATIC
     Route: 041
     Dates: start: 201103
  2. AVASTIN [Suspect]
     Indication: LUNG ADENOCARCINOMA METASTATIC
     Dosage: DOSAGE IS UNCERTAIN.
     Route: 041
     Dates: start: 2011, end: 201111
  3. CARBOPLATIN [Concomitant]
     Indication: LUNG ADENOCARCINOMA METASTATIC
     Dosage: ACU5 DAY1
     Route: 041
     Dates: start: 201103
  4. CARBOPLATIN [Concomitant]
     Indication: LUNG ADENOCARCINOMA METASTATIC
     Dosage: DOSAGE IS UNCERTAIN.
     Route: 041
     Dates: start: 2011, end: 201111
  5. PACLITAXEL [Concomitant]
     Indication: LUNG ADENOCARCINOMA METASTATIC
     Dosage: DAY1 8 15
     Route: 041
     Dates: start: 201103
  6. PACLITAXEL [Concomitant]
     Indication: LUNG ADENOCARCINOMA METASTATIC
     Dosage: DOSAGE IS UNCERTAIN.
     Route: 041
     Dates: start: 2011, end: 201111

REACTIONS (7)
  - Metastases to meninges [Fatal]
  - Pneumothorax [Recovering/Resolving]
  - Pyopneumothorax [Recovering/Resolving]
  - Tumour necrosis [Unknown]
  - Bronchial fistula [Recovering/Resolving]
  - Infectious pleural effusion [Recovering/Resolving]
  - Metastases to central nervous system [Unknown]
